FAERS Safety Report 19884404 (Version 1)
Quarter: 2021Q3

REPORT INFORMATION
  Report Type: Spontaneous
  Country: US (occurrence: US)
  Receive Date: 20210927
  Receipt Date: 20210927
  Transmission Date: 20211014
  Serious: No
  Sender: FDA-Public Use
  Company Number: US-APOTEX-2021AP039282

PATIENT
  Sex: Female

DRUGS (2)
  1. NICOTINE. [Suspect]
     Active Substance: NICOTINE
     Indication: PRODUCT USED FOR UNKNOWN INDICATION
     Dosage: 21 MILLIGRAM, QD
     Route: 062
  2. NICOTINE. [Suspect]
     Active Substance: NICOTINE
     Dosage: 21 UNK
     Route: 065

REACTIONS (2)
  - Product adhesion issue [Unknown]
  - Skin irritation [Unknown]
